FAERS Safety Report 10606626 (Version 1)
Quarter: 2014Q4

REPORT INFORMATION
  Report Type: Spontaneous
  Country: JP (occurrence: JP)
  Receive Date: 20141125
  Receipt Date: 20141125
  Transmission Date: 20150529
  Serious: Yes (Death, Life-Threatening)
  Sender: FDA-Public Use
  Company Number: JP-MALLINCKRODT-T201404157

PATIENT
  Age: 74 Year
  Sex: Male
  Weight: 45 kg

DRUGS (15)
  1. METHADONE [Suspect]
     Active Substance: METHADONE HYDROCHLORIDE
     Dosage: 10 MG (20 MG DAILY DOSE)
     Route: 048
     Dates: start: 20140731, end: 20140801
  2. LOXONIN [Concomitant]
     Active Substance: LOXOPROFEN SODIUM
     Dosage: 180 MG
     Route: 048
     Dates: start: 20140319, end: 20140801
  3. PLETAAL [Concomitant]
     Active Substance: CILOSTAZOL
     Dosage: 200 MG
     Route: 048
     Dates: start: 20140704, end: 20140730
  4. LYRICA [Suspect]
     Active Substance: PREGABALIN
     Indication: ANALGESIC THERAPY
     Dosage: 75 MG
     Route: 048
     Dates: start: 20140616, end: 20140729
  5. FENTOS [Suspect]
     Active Substance: FENTANYL
     Indication: ANALGESIC THERAPY
     Dosage: 8 MG
     Route: 062
     Dates: start: 20140509, end: 20140729
  6. FENTOS [Suspect]
     Active Substance: FENTANYL
     Dosage: 2 MG
     Route: 062
     Dates: start: 20140730, end: 20140730
  7. ABSTRAL [Concomitant]
     Active Substance: FENTANYL CITRATE
     Dosage: 200 ?G, 100 ?G
     Route: 060
     Dates: start: 20140731, end: 20140731
  8. MYSLEE [Concomitant]
     Active Substance: ZOLPIDEM TARTRATE
     Dosage: 5 MG
     Route: 048
     Dates: start: 20140713, end: 20140801
  9. METHADONE [Suspect]
     Active Substance: METHADONE HYDROCHLORIDE
     Indication: CANCER PAIN
     Dosage: 10 MG (30 MG DAILY DOSE)
     Route: 048
     Dates: start: 20140728, end: 20140731
  10. FENTOS [Suspect]
     Active Substance: FENTANYL
     Dosage: 2 MG
     Route: 062
     Dates: start: 20140801, end: 20140802
  11. PANTOSIN [Concomitant]
     Active Substance: PANTETHINE
     Dosage: 3000 MG
     Route: 048
     Dates: start: 20140531, end: 20140801
  12. DUROTEP [Concomitant]
     Active Substance: FENTANYL
     Dosage: 4.2 MG
     Route: 062
     Dates: start: 20140731, end: 20140731
  13. XTANDI [Concomitant]
     Active Substance: ENZALUTAMIDE
     Indication: PROSTATE CANCER
     Dosage: 160 MG
     Route: 048
     Dates: start: 20140527, end: 20140801
  14. MUCOSTA [Concomitant]
     Active Substance: REBAMIPIDE
     Dosage: 200 MG
     Route: 048
     Dates: start: 20140622, end: 20140801
  15. MAGNESIUM OXIDE. [Concomitant]
     Active Substance: MAGNESIUM OXIDE
     Dosage: 1500 MG
     Route: 048
     Dates: start: 20140531, end: 20140801

REACTIONS (2)
  - Prostate cancer [Fatal]
  - Altered state of consciousness [Recovered/Resolved]

NARRATIVE: CASE EVENT DATE: 20140729
